FAERS Safety Report 17537032 (Version 1)
Quarter: 2020Q1

REPORT INFORMATION
  Report Type: Spontaneous
  Country: US (occurrence: US)
  Receive Date: 20200304
  Receipt Date: 20200304
  Transmission Date: 20200409
  Serious: Yes (Other)
  Sender: FDA-Public Use
  Company Number: None

PATIENT
  Age: 5 Year
  Sex: Female
  Weight: 62.9 kg

DRUGS (9)
  1. HYDROCODONE-ACETAMINOPHEN [Concomitant]
     Active Substance: ACETAMINOPHEN\HYDROCODONE
  2. MORPHINE [Concomitant]
     Active Substance: MORPHINE
  3. TRASTUZUMAB. [Suspect]
     Active Substance: TRASTUZUMAB
     Indication: BREAST CANCER METASTATIC
     Route: 042
     Dates: start: 20191220, end: 20200212
  4. BUPROPION. [Concomitant]
     Active Substance: BUPROPION
  5. POLYETHYLENE GLYCOL [Concomitant]
     Active Substance: POLYETHYLENE GLYCOLS
  6. FERROUS SULFATE. [Concomitant]
     Active Substance: FERROUS SULFATE
  7. SENNA DOCUSATE [Concomitant]
  8. ATEZOLIZUMAB. [Suspect]
     Active Substance: ATEZOLIZUMAB
     Indication: BREAST CANCER METASTATIC
     Route: 042
     Dates: start: 20191220, end: 20200129
  9. METOCLOPRAMIDE HCI [Concomitant]

REACTIONS (4)
  - Abdominal pain [None]
  - Disease progression [None]
  - Nausea [None]
  - Constipation [None]

NARRATIVE: CASE EVENT DATE: 20200212
